FAERS Safety Report 8453484-6 (Version None)
Quarter: 2012Q2

REPORT INFORMATION
  Report Type: 
  Country: None (occurrence: None)
  Receive Date: 20120620
  Receipt Date: 20120518
  Transmission Date: 20120825
  Serious: No
  Sender: FDA-Public Use
  Company Number: US-VERTEX PHARMACEUTICALS INC.-AE-2012-007425

PATIENT
  Sex: Male
  Weight: 85.806 kg

DRUGS (4)
  1. INCIVEK [Suspect]
     Indication: HEPATITIS C
     Route: 048
     Dates: start: 20120225
  2. RIBAVIRIN [Concomitant]
     Route: 048
     Dates: start: 20120514
  3. PEGASYS [Concomitant]
     Indication: HEPATITIS C
     Dates: start: 20120225
  4. RIBAVIRIN [Concomitant]
     Indication: HEPATITIS C
     Route: 048
     Dates: start: 20120225, end: 20120423

REACTIONS (4)
  - DIARRHOEA [None]
  - ANAEMIA [None]
  - FATIGUE [None]
  - RASH [None]
